FAERS Safety Report 9161867 (Version 3)
Quarter: 2013Q2

REPORT INFORMATION
  Report Type: Spontaneous
  Country: US (occurrence: US)
  Receive Date: 20130314
  Receipt Date: 20130404
  Transmission Date: 20140414
  Serious: No
  Sender: FDA-Public Use
  Company Number: US-BIOGENIDEC-2013BI023426

PATIENT
  Sex: Female

DRUGS (1)
  1. TYSABRI [Suspect]
     Indication: MULTIPLE SCLEROSIS
     Route: 042
     Dates: start: 20120327

REACTIONS (4)
  - Influenza like illness [Recovered/Resolved]
  - Migraine [Recovered/Resolved]
  - Amnesia [Not Recovered/Not Resolved]
  - Nasopharyngitis [Not Recovered/Not Resolved]
